FAERS Safety Report 22949875 (Version 3)
Quarter: 2024Q2

REPORT INFORMATION
  Report Type: Spontaneous
  Country: US (occurrence: US)
  Receive Date: 20230915
  Receipt Date: 20240506
  Transmission Date: 20240716
  Serious: No
  Sender: FDA-Public Use
  Company Number: US-SA-SAC20230911001080

PATIENT
  Sex: Male

DRUGS (1)
  1. DUPIXENT [Suspect]
     Active Substance: DUPILUMAB
     Dosage: 200 MG, QOW
     Route: 058

REACTIONS (10)
  - Superficial injury of eye [Unknown]
  - Eye infection bacterial [Unknown]
  - Condition aggravated [Unknown]
  - Injection site pruritus [Unknown]
  - Injection site swelling [Unknown]
  - Eye pruritus [Unknown]
  - Conjunctivitis [Unknown]
  - Dry eye [Unknown]
  - Rash [Unknown]
  - Drug ineffective [Unknown]
